FAERS Safety Report 16522936 (Version 1)
Quarter: 2019Q3

REPORT INFORMATION
  Report Type: Spontaneous
  Country: US (occurrence: US)
  Receive Date: 20190702
  Receipt Date: 20190702
  Transmission Date: 20191004
  Serious: No
  Sender: FDA-Public Use
  Company Number: US-TEVA-2019-US-1060434

PATIENT
  Sex: Female

DRUGS (1)
  1. LIDOCAINE TOPICAL 5% PATCH ACTAVIS [Suspect]
     Active Substance: LIDOCAINE
     Indication: HERPES ZOSTER
     Route: 061

REACTIONS (2)
  - Hypertension [Unknown]
  - Blood glucose increased [Unknown]
